FAERS Safety Report 4846830-3 (Version None)
Quarter: 2005Q4

REPORT INFORMATION
  Report Type: 
  Country: None (occurrence: None)
  Receive Date: 20051207
  Receipt Date: 20051124
  Transmission Date: 20060501
  Serious: Yes (Hospitalization, Other)
  Sender: FDA-Public Use
  Company Number: PHBS2005US17448

PATIENT
  Age: 18 Year
  Sex: Female

DRUGS (17)
  1. CYCLOSPORINE [Suspect]
     Indication: RENAL TRANSPLANT
     Dosage: UNK, UNK
     Dates: start: 19990101, end: 20010101
  2. CYCLOSPORINE [Suspect]
     Dosage: UNK, UNK
     Dates: start: 20030901
  3. EPOETIN ALFA [Concomitant]
     Indication: ANAEMIA
  4. ANTITHYMOCYTE IMMUNOGLOBULIN [Concomitant]
  5. CELLCEPT [Concomitant]
  6. PREDNISONE [Concomitant]
  7. NORVASC [Concomitant]
     Indication: HYPERTENSION
     Dosage: 10 MG/D
  8. KEPPRA [Concomitant]
     Indication: CONVULSION
  9. IMURAN [Concomitant]
     Indication: KIDNEY TRANSPLANT REJECTION
  10. RAPAMUNE [Concomitant]
     Indication: KIDNEY TRANSPLANT REJECTION
  11. FERROUS SULFATE TAB [Concomitant]
     Indication: ANAEMIA
     Dosage: UNK, BID
     Route: 048
     Dates: start: 20030101
  12. DARBEPOETIN ALFA [Concomitant]
     Indication: ANAEMIA
     Dosage: 60 UG, QW
     Dates: start: 20040120
  13. DARBEPOETIN ALFA [Concomitant]
     Dosage: 100 UG, QW
     Dates: start: 20040520
  14. DARBEPOETIN ALFA [Concomitant]
     Dosage: 60 UG, TIW
  15. DARBEPOETIN ALFA [Concomitant]
     Dosage: 60 UG, QW
     Dates: start: 20031030
  16. HYDRALAZINE [Concomitant]
     Indication: BLOOD PRESSURE INCREASED
     Dosage: 5 MG/DAY
     Route: 042
  17. LABETALOL [Concomitant]
     Indication: HYPERTENSION
     Dosage: 10 MG/D
     Route: 042

REACTIONS (17)
  - BLOOD CREATININE INCREASED [None]
  - BLOOD POTASSIUM INCREASED [None]
  - BLOOD PRESSURE INCREASED [None]
  - BLOOD UREA INCREASED [None]
  - CAESAREAN SECTION [None]
  - CONVULSION [None]
  - DRUG EXPOSURE DURING PREGNANCY [None]
  - FOETAL HEART RATE DECREASED [None]
  - GLOMERULAR FILTRATION RATE DECREASED [None]
  - HAEMOGLOBIN DECREASED [None]
  - KIDNEY TRANSPLANT REJECTION [None]
  - NEPHROPATHY TOXIC [None]
  - NORMAL NEWBORN [None]
  - PRE-ECLAMPSIA [None]
  - PYREXIA [None]
  - RENAL FAILURE ACUTE [None]
  - URINARY TRACT INFECTION [None]
